FAERS Safety Report 10048615 (Version 1)
Quarter: 2014Q1

REPORT INFORMATION
  Report Type: Spontaneous
  Country: IT (occurrence: IT)
  Receive Date: 20140331
  Receipt Date: 20140331
  Transmission Date: 20141002
  Serious: Yes (Other)
  Sender: FDA-Public Use
  Company Number: IT-WATSON-2014-05796

PATIENT
  Age: 74 Year
  Sex: Male

DRUGS (3)
  1. SERTRALINE (UNKNOWN) [Suspect]
     Indication: BIPOLAR DISORDER
     Dosage: 500 MG, DAILY
     Route: 048
     Dates: start: 20130101, end: 20140123
  2. NOZINAN                            /00038601/ [Suspect]
     Indication: BIPOLAR DISORDER
     Dosage: 50 MG, DAILY
     Route: 048
     Dates: start: 20130101, end: 20140123
  3. DELORAZEPAM [Suspect]
     Indication: BIPOLAR DISORDER
     Dosage: 500 MCG/TOTAL
     Route: 048
     Dates: start: 20130101, end: 20140123

REACTIONS (1)
  - Movement disorder [Unknown]
